FAERS Safety Report 4647575-5 (Version None)
Quarter: 2005Q2

REPORT INFORMATION
  Report Type: 
  Country: None (occurrence: None)
  Receive Date: 20050427
  Receipt Date: 20050427
  Transmission Date: 20051028
  Serious: Yes (Hospitalization)
  Sender: FDA-Public Use
  Company Number: None

PATIENT
  Age: 77 Year
  Sex: Female
  Weight: 72.5755 kg

DRUGS (8)
  1. FEMARA [Suspect]
     Indication: BREAST CANCER
     Dosage: 25 MG PO QD
     Route: 048
     Dates: start: 20050302
  2. TARCEVA [Suspect]
     Dosage: 150 MG PO QD
     Route: 048
     Dates: start: 20050302, end: 20050331
  3. ISOSORBIDE [Concomitant]
  4. ASPIRIN [Concomitant]
  5. COREG [Concomitant]
  6. LANOXIN [Concomitant]
  7. MAVIK [Concomitant]
  8. LASIX [Concomitant]

REACTIONS (4)
  - ACUTE PRERENAL FAILURE [None]
  - METABOLIC ACIDOSIS [None]
  - URINARY TRACT INFECTION [None]
  - WEIGHT DECREASED [None]
